FAERS Safety Report 7617038-3 (Version None)
Quarter: 2011Q3

REPORT INFORMATION
  Report Type: 
  Country: None (occurrence: None)
  Receive Date: 20110718
  Receipt Date: 20090316
  Transmission Date: 20111222
  Serious: Yes (Death, Hospitalization, Other)
  Sender: FDA-Public Use
  Company Number: US-BAYER-200915508NA

PATIENT
  Age: 62 Year
  Sex: Male
  Weight: 75 kg

DRUGS (30)
  1. ZANTAC [Concomitant]
  2. MORPHINE [Concomitant]
     Dosage: 5 MG,TIMES 2
     Route: 042
     Dates: start: 20001031, end: 20001031
  3. TRASYLOL [Suspect]
     Indication: AORTIC BYPASS
     Dosage: 100 ML PRIME
     Route: 042
     Dates: start: 20001031, end: 20001031
  4. AMOXICILLIN [Concomitant]
     Dosage: 250 MG, BID
     Route: 048
  5. VERSED [Concomitant]
     Dosage: 3 MG, UNK
     Route: 042
  6. COUMADIN [Concomitant]
     Dosage: 1 MG, BID
     Route: 048
     Dates: start: 20001001
  7. LOPRESSOR [Concomitant]
     Dosage: 25 MG/24HR, UNK
     Route: 048
     Dates: start: 20001001
  8. LASIX [Concomitant]
     Dosage: 120 MG, UNK
     Route: 042
     Dates: start: 20001031, end: 20001031
  9. ANCEF [Concomitant]
     Dosage: 2 G, UNK
     Route: 042
     Dates: start: 20001031, end: 20001031
  10. ALLOPURINOL [Concomitant]
  11. AMIDATE [Concomitant]
     Dosage: 14 MG, UNK
     Route: 042
     Dates: start: 20001031, end: 20001031
  12. TRASYLOL [Suspect]
     Indication: AORTIC VALVE REPLACEMENT
     Dosage: 1 ML, UNK
     Route: 042
     Dates: start: 20001031, end: 20001031
  13. ACETYLSALICYLIC ACID SRT [Concomitant]
     Dosage: 325 MG, UNK
     Route: 048
  14. LISINOPRIL [Concomitant]
     Dosage: 20 MG/24HR, UNK
     Route: 048
  15. VALIUM [Concomitant]
     Dosage: 5 MG, UNK
  16. VERSED [Concomitant]
     Dosage: 8 MG, UNK
     Route: 042
     Dates: start: 20001031, end: 20001031
  17. SOLU-MEDROL [Concomitant]
     Dosage: 1 G,IN BYPASS PUMP
     Route: 042
     Dates: start: 20001031, end: 20001031
  18. AMIODARONE HCL [Concomitant]
     Dosage: 150 MG LOADING DOSE
     Route: 042
     Dates: start: 20001031, end: 20001031
  19. LIDOCAINE [Concomitant]
     Dosage: 100 MG, UNK
     Dates: start: 20001031, end: 20001031
  20. PROTAMINE SULFATE [Concomitant]
     Dosage: 600 MG, UNK
     Route: 042
     Dates: start: 20001031, end: 20001031
  21. LASIX [Concomitant]
     Dosage: 20 MG, QD
  22. SUFENTANIL CITRATE [Concomitant]
     Dosage: 200 MG, UNK
     Route: 042
     Dates: start: 20001031, end: 20001031
  23. ATROPINE [Concomitant]
     Dosage: 1 MG, UNK
     Dates: start: 20001031, end: 20001031
  24. PRAVASTATIN [Concomitant]
     Dosage: 20 MG  AT BEDTIME
     Route: 048
  25. RED BLOOD CELLS [Concomitant]
     Dosage: 2 U, UNK
     Dates: start: 20001031
  26. LOVENOX [Concomitant]
     Dosage: 60 MG, 4 TIMES DAILY
     Route: 058
     Dates: start: 20001001
  27. ISORDIL [Concomitant]
     Dosage: 20 MG, TID
     Route: 048
  28. BENADRYL [Concomitant]
     Dosage: 50 MG, UNK
     Dates: start: 20001020
  29. HEPARIN [Concomitant]
     Dosage: 15,000 UNITS
     Route: 042
     Dates: start: 20001031, end: 20001031
  30. NORCURON [Concomitant]
     Dosage: 10 MG, UNK
     Route: 042
     Dates: start: 20001031, end: 20001031

REACTIONS (10)
  - INJURY [None]
  - ANXIETY [None]
  - PAIN [None]
  - DEATH [None]
  - CEREBROVASCULAR ACCIDENT [None]
  - DEPRESSION [None]
  - FEAR [None]
  - ANHEDONIA [None]
  - RENAL FAILURE [None]
  - ADVERSE EVENT [None]
